FAERS Safety Report 9289914 (Version 3)
Quarter: 2013Q3

REPORT INFORMATION
  Report Type: Report from Study
  Country: CA (occurrence: CA)
  Receive Date: 20130515
  Receipt Date: 20130708
  Transmission Date: 20140515
  Serious: Yes (Other)
  Sender: FDA-Public Use
  Company Number: CA-ROCHE-1224465

PATIENT
  Sex: Female
  Weight: 70.3 kg

DRUGS (14)
  1. RITUXAN [Suspect]
     Indication: PEMPHIGOID
     Dosage: LAST DOSE ON 09/FEB/2012
     Route: 042
     Dates: start: 20111130
  2. DIPHENHYDRAMINE HCL [Concomitant]
     Indication: PREMEDICATION
     Route: 048
     Dates: start: 20111130
  3. ACETAMINOPHEN [Concomitant]
     Indication: PREMEDICATION
     Route: 048
     Dates: start: 20111130
  4. METHYLPREDNISOLONE [Concomitant]
     Indication: PREMEDICATION
     Route: 042
     Dates: start: 20111130
  5. COZARTAN [Concomitant]
  6. PAXIL [Concomitant]
  7. PANTOLOC [Concomitant]
  8. SINGULAIR [Concomitant]
  9. ELAVIL [Concomitant]
  10. PROCYTOX [Concomitant]
  11. PERIDON [Concomitant]
  12. CYCLOPHOSPHAMIDE [Concomitant]
  13. PAROXETINE [Concomitant]
     Route: 065
  14. PAROXETINE [Concomitant]
     Dosage: DOSE REDUCED TO HALF.
     Route: 065

REACTIONS (3)
  - Bladder pain [Unknown]
  - Urinary incontinence [Not Recovered/Not Resolved]
  - Hypersensitivity [Unknown]
